FAERS Safety Report 8852958 (Version 2)
Quarter: 2012Q4

REPORT INFORMATION
  Report Type: Report from Study
  Country: JP (occurrence: JP)
  Receive Date: 20121022
  Receipt Date: 20121205
  Transmission Date: 20130627
  Serious: Yes (Death)
  Sender: FDA-Public Use
  Company Number: JP-MSD-2012SP036737

PATIENT
  Age: 38 Year
  Sex: Male
  Weight: 65 kg

DRUGS (11)
  1. TEMOZOLOMIDE [Suspect]
     Indication: ANAPLASTIC ASTROCYTOMA
     Dosage: 150 mg/m2, QD (dose increased)
     Route: 048
     Dates: start: 20111205, end: 20111209
  2. TEMOZOLOMIDE [Suspect]
     Dosage: 200 mg/m2, QD
     Route: 048
     Dates: start: 20120110, end: 20120114
  3. TEMOZOLOMIDE [Suspect]
     Dosage: 200 mg/m2, QD (dose reduced)
     Route: 048
     Dates: start: 20120207, end: 20120211
  4. TEMOZOLOMIDE [Suspect]
     Dosage: 150 mg/m2, QD
     Route: 048
     Dates: start: 20120306, end: 20120310
  5. TEMOZOLOMIDE [Suspect]
     Dosage: 150 mg/m2, qd
     Route: 048
     Dates: start: 20120403, end: 20120407
  6. PREDNISOLONE [Concomitant]
     Indication: PROPHYLAXIS
     Dosage: UNK, Unknown
     Route: 048
     Dates: start: 20111205, end: 20120403
  7. GASTER [Concomitant]
     Indication: PROPHYLAXIS
     Dosage: UNK mg, UNK
     Route: 048
     Dates: start: 20111205, end: 20120403
  8. LOXONIN [Concomitant]
     Indication: PROPHYLAXIS
     Dosage: 60 mg, UNK
     Route: 048
     Dates: end: 20120403
  9. FERON [Concomitant]
     Dosage: UNK, Unknown
     Route: 042
     Dates: start: 20120110, end: 20120403
  10. TERPERAN [Concomitant]
     Indication: PROPHYLAXIS
     Dosage: UNK
     Route: 048
     Dates: start: 20111205, end: 20120114
  11. EMEND [Concomitant]
     Indication: PROPHYLAXIS
     Dosage: daily dose Unknown
     Route: 048
     Dates: start: 20120207, end: 20120407

REACTIONS (2)
  - Nausea [Recovered/Resolved]
  - Disease progression [Fatal]
